FAERS Safety Report 4344169-6 (Version None)
Quarter: 2004Q2

REPORT INFORMATION
  Report Type: 
  Country: None (occurrence: None)
  Receive Date: 20040422
  Receipt Date: 20040413
  Transmission Date: 20050107
  Serious: Yes (Hospitalization)
  Sender: FDA-Public Use
  Company Number: PHRM2004FR01512

PATIENT
  Age: 78 Year
  Sex: Female

DRUGS (5)
  1. TAREG [Suspect]
     Dosage: 1 DF, QD
     Route: 048
     Dates: end: 20040120
  2. LASIX [Concomitant]
     Dosage: 1 DF, QD
     Route: 048
  3. INSULIN [Concomitant]
  4. PREVISCAN [Concomitant]
     Route: 048
     Dates: end: 20040107
  5. CORDARONE [Concomitant]
     Dosage: 200 MG, QD
     Route: 048
     Dates: start: 20040107

REACTIONS (5)
  - BLOOD CREATININE INCREASED [None]
  - BLOOD UREA INCREASED [None]
  - CARDIOPULMONARY FAILURE [None]
  - HYPONATRAEMIA [None]
  - RENAL FAILURE ACUTE [None]
